FAERS Safety Report 5508578-1 (Version None)
Quarter: 2007Q4

REPORT INFORMATION
  Report Type: 
  Country: None (occurrence: None)
  Receive Date: 20071031
  Receipt Date: 20070719
  Transmission Date: 20080405
  Serious: No
  Sender: FDA-Public Use
  Company Number: 2007PV033164

PATIENT
  Age: 48 Year
  Sex: Female
  Weight: 91.6266 kg

DRUGS (6)
  1. SYMLIN [Suspect]
     Indication: TYPE 1 DIABETES MELLITUS
     Dosage: 60 MCG;TID; SC; 60 MCG;BID; SC; 45 MCG; SC; 30 MCG; SC; 15 MCG;TID; SC; 15 MCG;BID; SC
     Route: 058
     Dates: start: 20070101, end: 20070101
  2. SYMLIN [Suspect]
     Indication: TYPE 1 DIABETES MELLITUS
     Dosage: 60 MCG;TID; SC; 60 MCG;BID; SC; 45 MCG; SC; 30 MCG; SC; 15 MCG;TID; SC; 15 MCG;BID; SC
     Route: 058
     Dates: start: 20070101, end: 20070101
  3. SYMLIN [Suspect]
     Indication: TYPE 1 DIABETES MELLITUS
     Dosage: 60 MCG;TID; SC; 60 MCG;BID; SC; 45 MCG; SC; 30 MCG; SC; 15 MCG;TID; SC; 15 MCG;BID; SC
     Route: 058
     Dates: start: 20070626, end: 20070101
  4. SYMLIN [Suspect]
     Indication: TYPE 1 DIABETES MELLITUS
     Dosage: 60 MCG;TID; SC; 60 MCG;BID; SC; 45 MCG; SC; 30 MCG; SC; 15 MCG;TID; SC; 15 MCG;BID; SC
     Route: 058
     Dates: start: 20070626, end: 20070101
  5. SYMLIN [Suspect]
     Indication: TYPE 1 DIABETES MELLITUS
     Dosage: 60 MCG;TID; SC; 60 MCG;BID; SC; 45 MCG; SC; 30 MCG; SC; 15 MCG;TID; SC; 15 MCG;BID; SC
     Route: 058
     Dates: start: 20070711
  6. SYMLIN [Suspect]
     Indication: TYPE 1 DIABETES MELLITUS
     Dosage: 60 MCG;TID; SC; 60 MCG;BID; SC; 45 MCG; SC; 30 MCG; SC; 15 MCG;TID; SC; 15 MCG;BID; SC
     Route: 058
     Dates: start: 20070711

REACTIONS (2)
  - BLOOD GLUCOSE INCREASED [None]
  - DRUG INEFFECTIVE [None]
